FAERS Safety Report 14311422 (Version 1)
Quarter: 2017Q4

REPORT INFORMATION
  Report Type: Spontaneous
  Country: US (occurrence: US)
  Receive Date: 20171221
  Receipt Date: 20171221
  Transmission Date: 20180321
  Serious: No
  Sender: FDA-Public Use
  Company Number: US-NOVEN PHARMACEUTICALS, INC.-US2017001109

PATIENT

DRUGS (1)
  1. MINIVELLE [Suspect]
     Active Substance: ESTRADIOL
     Indication: OSTEOPOROSIS
     Dosage: APPLIED HALF PATCH OF 0.025 MG, UNKNOWN
     Route: 062

REACTIONS (10)
  - Off label use [Unknown]
  - Throat tightness [Recovered/Resolved]
  - Depressed mood [Recovered/Resolved]
  - Prescribed underdose [Recovered/Resolved]
  - Arthralgia [Recovered/Resolved]
  - Application site burn [Recovered/Resolved]
  - Therapy cessation [Not Recovered/Not Resolved]
  - Wrong technique in product usage process [Recovered/Resolved]
  - Application site erosion [Recovered/Resolved]
  - Pharyngeal oedema [Recovered/Resolved]
